FAERS Safety Report 13583470 (Version 1)
Quarter: 2017Q2

REPORT INFORMATION
  Report Type: Report from Study
  Country: None (occurrence: CA)
  Receive Date: 20170526
  Receipt Date: 20170526
  Transmission Date: 20170830
  Serious: Yes (Other)
  Sender: FDA-Public Use
  Company Number: CA-ABBVIE-17K-028-1897107-00

PATIENT
  Sex: Female

DRUGS (1)
  1. HUMIRA [Suspect]
     Active Substance: ADALIMUMAB
     Indication: CROHN^S DISEASE
     Route: 058
     Dates: start: 20161111

REACTIONS (5)
  - Dyspepsia [Recovering/Resolving]
  - Nausea [Recovered/Resolved]
  - Intestinal obstruction [Unknown]
  - Abdominal distension [Recovered/Resolved]
  - Vomiting [Recovered/Resolved]
